FAERS Safety Report 13740230 (Version 3)
Quarter: 2018Q1

REPORT INFORMATION
  Report Type: Spontaneous
  Country: US (occurrence: US)
  Receive Date: 20170711
  Receipt Date: 20180112
  Transmission Date: 20180508
  Serious: No
  Sender: FDA-Public Use
  Company Number: US-ALKERMES INC.-ALK-2017-001581

PATIENT
  Age: 63 Year
  Sex: Male
  Weight: 88.44 kg

DRUGS (2)
  1. ARISTADA [Suspect]
     Active Substance: ARIPIPRAZOLE LAUROXIL
     Dosage: 882 MG, QMO
     Route: 030
     Dates: start: 20171005
  2. ARISTADA [Suspect]
     Active Substance: ARIPIPRAZOLE LAUROXIL
     Indication: SCHIZOPHRENIA
     Dosage: 662 MG, QMO
     Route: 030
     Dates: start: 20170324

REACTIONS (6)
  - Injection site pain [Recovering/Resolving]
  - Off label use [Not Recovered/Not Resolved]
  - Product administered at inappropriate site [Recovering/Resolving]
  - Injection site erythema [Recovering/Resolving]
  - Drug ineffective [Recovering/Resolving]
  - Injection site inflammation [Not Recovered/Not Resolved]

NARRATIVE: CASE EVENT DATE: 2017
